FAERS Safety Report 12319077 (Version 1)
Quarter: 2016Q2

REPORT INFORMATION
  Report Type: Spontaneous
  Country: US (occurrence: US)
  Receive Date: 20160429
  Receipt Date: 20160429
  Transmission Date: 20160815
  Serious: Yes (Hospitalization)
  Sender: FDA-Public Use
  Company Number: US-BRAINTREE LABORATORIES-160298

PATIENT
  Age: 49 Year
  Sex: Female
  Weight: 95.25 kg

DRUGS (1)
  1. SUPREP BOWEL PREP [Suspect]
     Active Substance: MAGNESIUM SULFATE\POTASSIUM SULFATE\SODIUM SULFATE
     Indication: COLONOSCOPY
     Dosage: 2 X 6 OZ. BOTTLE
     Route: 048
     Dates: start: 20160417, end: 20160417

REACTIONS (12)
  - Headache [None]
  - Nausea [None]
  - Urine output decreased [None]
  - Pancreatic enzymes increased [None]
  - Pain [None]
  - Chills [None]
  - Abdominal pain [None]
  - Asthenia [None]
  - Liver function test abnormal [None]
  - Decreased appetite [None]
  - Blood potassium decreased [None]
  - White blood cell count increased [None]

NARRATIVE: CASE EVENT DATE: 20160417
